FAERS Safety Report 6755947-8 (Version None)
Quarter: 2010Q2

REPORT INFORMATION
  Report Type: 
  Country: None (occurrence: None)
  Receive Date: 20100604
  Receipt Date: 20100520
  Transmission Date: 20101027
  Serious: Yes (Other)
  Sender: FDA-Public Use
  Company Number: PHFR2010GB00734

PATIENT
  Age: 83 Year
  Sex: Female
  Weight: 49 kg

DRUGS (11)
  1. FEMARA [Suspect]
     Indication: BREAST CANCER
     Dosage: 2.5 MG, UNK
     Route: 048
     Dates: start: 20100424, end: 20100427
  2. AMITRIPTYLINE [Concomitant]
     Indication: NEURALGIA
     Dosage: 25 MG, UNK
     Route: 048
  3. ANGEZE [Concomitant]
     Indication: ANGINA PECTORIS
     Dosage: 30 MG, UNK
     Route: 048
  4. ACETYLSALICYLIC ACID [Concomitant]
     Indication: TRANSIENT ISCHAEMIC ATTACK
     Dosage: 75 MG, UNK
     Route: 048
  5. BENDROFLUMETHIAZIDE [Concomitant]
     Indication: HYPERTENSION
     Dosage: 2.5 MG, UNK
     Route: 048
  6. BENDROFLUMETHIAZIDE [Concomitant]
     Indication: CARDIAC FAILURE
  7. ERYTHROMYCIN [Concomitant]
     Indication: INFECTED SKIN ULCER
     Dosage: 500 MG, QID
  8. LEVOTHYROXINE SODIUM [Concomitant]
     Indication: HYPOTHYROIDISM
     Dosage: 100 UG, UNK
     Route: 048
  9. NICORANDIL [Concomitant]
     Indication: ANGINA PECTORIS
     Dosage: 20 MG, UNK
     Route: 048
  10. OXYCODONE [Concomitant]
     Indication: PAIN IN EXTREMITY
     Dosage: 20 MG, UNK
     Route: 048
  11. SIMVASTATIN [Concomitant]
     Indication: BLOOD CHOLESTEROL INCREASED
     Dosage: 40 MG, UNK

REACTIONS (7)
  - ABDOMINAL DISCOMFORT [None]
  - ABDOMINAL PAIN [None]
  - CONVERSION DISORDER [None]
  - DEPRESSION [None]
  - HYPERVENTILATION [None]
  - SOMNOLENCE [None]
  - STRESS [None]
